FAERS Safety Report 4763552-8 (Version None)
Quarter: 2005Q3

REPORT INFORMATION
  Report Type: 
  Country: None (occurrence: None)
  Receive Date: 20050826
  Receipt Date: 20050211
  Transmission Date: 20060218
  Serious: Yes (Death)
  Sender: FDA-Public Use
  Company Number: USA-2003-0011287

PATIENT
  Age: 19 Year
  Sex: Male
  Weight: 68 kg

DRUGS (4)
  1. OXYCONTIN [Suspect]
     Dosage: 160 MG, SINGLE
  2. HYDROCODONE (HYDROCODONE) [Suspect]
  3. HYDROMORPHONE HCL [Suspect]
  4. OXAZEPAM [Suspect]

REACTIONS (4)
  - ACCIDENTAL OVERDOSE [None]
  - DROOLING [None]
  - HAEMORRHAGE [None]
  - MULTIPLE DRUG OVERDOSE [None]
